FAERS Safety Report 6266183-6 (Version None)
Quarter: 2009Q3

REPORT INFORMATION
  Report Type: 
  Country: None (occurrence: None)
  Receive Date: 20090709
  Receipt Date: 20090630
  Transmission Date: 20100115
  Serious: Yes (Other)
  Sender: FDA-Public Use
  Company Number: 2009SP014508

PATIENT
  Age: 4 Year
  Sex: Female
  Weight: 21.8 kg

DRUGS (2)
  1. DESLORATADINE [Suspect]
     Indication: RHINITIS
     Dosage: PO
     Route: 048
     Dates: start: 20090601, end: 20090601
  2. NASONEX [Suspect]
     Indication: RHINITIS
     Dosage: NAS
     Route: 045
     Dates: start: 20090601, end: 20090601

REACTIONS (3)
  - ABDOMINAL PAIN [None]
  - DIARRHOEA [None]
  - VOMITING [None]
